FAERS Safety Report 17580783 (Version 1)
Quarter: 2020Q1

REPORT INFORMATION
  Report Type: Spontaneous
  Country: US (occurrence: US)
  Receive Date: 20200310
  Receipt Date: 20200310
  Transmission Date: 20200409
  Serious: Yes (Disabling)
  Sender: FDA-Public Use
  Company Number: None

PATIENT
  Age: 46 Year
  Sex: Female
  Weight: 119.25 kg

DRUGS (14)
  1. CBD GUMMY [Concomitant]
  2. MELATONIN [Concomitant]
     Active Substance: MELATONIN
  3. GLUCOSAMIN CHONDROITIN [Concomitant]
  4. BENZONATE [Concomitant]
     Active Substance: BENZONATATE
  5. SUS NEOS [Concomitant]
  6. OMEGA 3 [Concomitant]
     Active Substance: OMEGA-3 FATTY ACIDS
  7. PROAIR DIGIHALER/ALBJUTEROL SULFATE [Concomitant]
  8. MULTIVITAMIN [Concomitant]
     Active Substance: VITAMINS
  9. VISTARIL [Concomitant]
     Active Substance: HYDROXYZINE PAMOATE
  10. DULOXETINE. [Concomitant]
     Active Substance: DULOXETINE
  11. NYSTATIN. [Concomitant]
     Active Substance: NYSTATIN
  12. LEVOFLOXACIN. [Suspect]
     Active Substance: LEVOFLOXACIN
     Indication: PNEUMONIA
     Dosage: ?          QUANTITY:5 TABLET(S);?
     Route: 048
     Dates: start: 20200306, end: 20200308
  13. BUPROPION  XL [Concomitant]
     Active Substance: BUPROPION
  14. GUD POLICPM [Concomitant]

REACTIONS (20)
  - Anxiety [None]
  - Hypertension [None]
  - Hallucination, auditory [None]
  - Tremor [None]
  - Paraesthesia [None]
  - Confusional state [None]
  - Tinnitus [None]
  - Insomnia [None]
  - Suicidal ideation [None]
  - Burning sensation [None]
  - Arthralgia [None]
  - Memory impairment [None]
  - Headache [None]
  - Mydriasis [None]
  - Dysarthria [None]
  - Musculoskeletal stiffness [None]
  - Candida infection [None]
  - Mood swings [None]
  - Depression [None]
  - Joint stiffness [None]

NARRATIVE: CASE EVENT DATE: 20200306
